FAERS Safety Report 4334379-6 (Version None)
Quarter: 2004Q1

REPORT INFORMATION
  Report Type: 
  Country: None (occurrence: None)
  Receive Date: 20040326
  Receipt Date: 20031211
  Transmission Date: 20041129
  Serious: No
  Sender: FDA-Public Use
  Company Number: US-JNJFOC-20031202925

PATIENT
  Sex: Female

DRUGS (1)
  1. REMINYL [Suspect]
     Indication: DRUG USE FOR UNKNOWN INDICATION
     Dosage: 8 MG, 2 IN 24 HOUR, ORAL;4 MG, ORAL
     Route: 048
     Dates: start: 20030101, end: 20030101

REACTIONS (1)
  - DRUG WITHDRAWAL SYNDROME [None]
